FAERS Safety Report 16718460 (Version 1)
Quarter: 2019Q3

REPORT INFORMATION
  Report Type: Spontaneous
  Country: US (occurrence: US)
  Receive Date: 20190820
  Receipt Date: 20190820
  Transmission Date: 20191005
  Serious: No
  Sender: FDA-Public Use
  Company Number: US-TEVA-2019-US-1039530

PATIENT
  Age: 83 Year
  Sex: Male
  Weight: 68.3 kg

DRUGS (2)
  1. MULTIVITAMINS [Concomitant]
     Active Substance: VITAMINS
     Dates: start: 1989
  2. FEXOFENADINE [Suspect]
     Active Substance: FEXOFENADINE HYDROCHLORIDE
     Indication: SEASONAL ALLERGY
     Route: 048
     Dates: start: 2016, end: 2017

REACTIONS (3)
  - Wrong technique in product usage process [Unknown]
  - Expired product administered [Unknown]
  - Product administered to patient of inappropriate age [Unknown]
